FAERS Safety Report 17599968 (Version 1)
Quarter: 2020Q1

REPORT INFORMATION
  Report Type: Spontaneous
  Country: FI (occurrence: FI)
  Receive Date: 20200330
  Receipt Date: 20200330
  Transmission Date: 20200409
  Serious: Yes (Other)
  Sender: FDA-Public Use
  Company Number: FI-AMERICAN REGENT INC-2020000736

PATIENT
  Sex: Female

DRUGS (2)
  1. MALTOFER                           /00023548/ [Suspect]
     Active Substance: IRON POLYMALTOSE
     Indication: PRODUCT USED FOR UNKNOWN INDICATION
     Route: 048
  2. FERINJECT [Suspect]
     Active Substance: FERRIC CARBOXYMALTOSE
     Indication: IRON DEFICIENCY
     Dosage: UNK
     Dates: start: 20200128, end: 20200128

REACTIONS (5)
  - Fatigue [Recovered/Resolved]
  - Seizure [Recovered/Resolved]
  - Abdominal pain upper [Recovered/Resolved]
  - Anaphylactic reaction [Recovered/Resolved]
  - Maternal exposure during pregnancy [Unknown]

NARRATIVE: CASE EVENT DATE: 20200128
